FAERS Safety Report 15287604 (Version 1)
Quarter: 2018Q3

REPORT INFORMATION
  Report Type: Spontaneous
  Country: FR (occurrence: FR)
  Receive Date: 20180817
  Receipt Date: 20180817
  Transmission Date: 20181010
  Serious: Yes (Hospitalization)
  Sender: FDA-Public Use
  Company Number: FR-TEVA-2018-FR-944580

PATIENT
  Age: 43 Year
  Sex: Female

DRUGS (2)
  1. LAROXYL [Concomitant]
     Active Substance: AMITRIPTYLINE HYDROCHLORIDE
     Indication: DEPRESSION
     Route: 065
  2. TERBINAFINE. [Suspect]
     Active Substance: TERBINAFINE
     Indication: ONYCHOMYCOSIS
     Dosage: 1 DOSAGE FORMS DAILY;
     Route: 048
     Dates: start: 20180514, end: 20180604

REACTIONS (4)
  - Cheilitis [Recovered/Resolved]
  - Rash [Recovered/Resolved]
  - Pruritus [Recovered/Resolved]
  - Eosinophilia [Unknown]

NARRATIVE: CASE EVENT DATE: 20180531
